FAERS Safety Report 5728589-0 (Version None)
Quarter: 2008Q2

REPORT INFORMATION
  Report Type: 
  Country: None (occurrence: None)
  Receive Date: 20080502
  Receipt Date: 20080502
  Transmission Date: 20081010
  Serious: Yes (Other)
  Sender: FDA-Public Use
  Company Number: None

PATIENT
  Age: 55 Year
  Sex: Male
  Weight: 101.6057 kg

DRUGS (1)
  1. DIGOXIN [Suspect]
     Indication: CARDIOMYOPATHY
     Dosage: 0.125 ONCE A DAY PO
     Route: 048
     Dates: start: 20080417, end: 20080429

REACTIONS (6)
  - ABNORMAL BEHAVIOUR [None]
  - ANGER [None]
  - HOMICIDAL IDEATION [None]
  - INCORRECT DOSE ADMINISTERED [None]
  - PHARMACEUTICAL PRODUCT COMPLAINT [None]
  - PSYCHOTIC DISORDER [None]
